FAERS Safety Report 16022748 (Version 1)
Quarter: 2019Q1

REPORT INFORMATION
  Report Type: Report from Study
  Country: US (occurrence: US)
  Receive Date: 20190301
  Receipt Date: 20190301
  Transmission Date: 20190418
  Serious: Yes (Death, Other)
  Sender: FDA-Public Use
  Company Number: US-JNJFOC-20190226523

PATIENT
  Age: 71 Year
  Sex: Male

DRUGS (15)
  1. ZITHROMAX [Concomitant]
     Active Substance: AZITHROMYCIN DIHYDRATE
  2. FLONASE [Concomitant]
     Active Substance: FLUTICASONE PROPIONATE
  3. LEVOTHYROXINE. [Concomitant]
     Active Substance: LEVOTHYROXINE
  4. ZOVIRAX [Concomitant]
     Active Substance: ACYCLOVIR
  5. METFORMIN [Concomitant]
     Active Substance: METFORMIN HYDROCHLORIDE
  6. IMBRUVICA [Suspect]
     Active Substance: IBRUTINIB
     Indication: CHRONIC LYMPHOCYTIC LEUKAEMIA
     Route: 048
     Dates: start: 20180510
  7. NOVOLOG [Concomitant]
     Active Substance: INSULIN ASPART
  8. METOPROLOL SUCCINATE. [Concomitant]
     Active Substance: METOPROLOL SUCCINATE
  9. LEVEMIR [Concomitant]
     Active Substance: INSULIN DETEMIR
  10. SULFAMETHOXAZOLE W/TRIMETHOPRIM [Concomitant]
     Active Substance: SULFAMETHOXAZOLE\TRIMETHOPRIM
  11. SIMVASTATIN. [Concomitant]
     Active Substance: SIMVASTATIN
  12. BACTRIM DS [Concomitant]
     Active Substance: SULFAMETHOXAZOLE\TRIMETHOPRIM
  13. ACYCLOVIR. [Concomitant]
     Active Substance: ACYCLOVIR
  14. LISINOPRIL. [Concomitant]
     Active Substance: LISINOPRIL
  15. ASPIRIN. [Concomitant]
     Active Substance: ASPIRIN

REACTIONS (4)
  - Ventricular fibrillation [Fatal]
  - Sinus bradycardia [Unknown]
  - Cerebrovascular accident [Unknown]
  - Vertigo [Unknown]

NARRATIVE: CASE EVENT DATE: 20190213
